FAERS Safety Report 6432880-2 (Version None)
Quarter: 2009Q4

REPORT INFORMATION
  Report Type: 
  Country: None (occurrence: None)
  Receive Date: 20091109
  Receipt Date: 20091102
  Transmission Date: 20100525
  Serious: Yes (Hospitalization)
  Sender: FDA-Public Use
  Company Number: FR-NAPPMUNDI-GBR-2009-0005745

PATIENT
  Sex: Male

DRUGS (3)
  1. OXYCONTIN [Suspect]
     Indication: PAIN
     Dosage: 5 MG, BID
     Route: 048
     Dates: start: 20091009, end: 20091022
  2. OXYNORM CAPSULES [Suspect]
     Indication: PAIN
     Dosage: 1 CAPSL, Q48H
     Route: 048
  3. OXYNORM CAPSULES [Suspect]
     Dosage: 1-2 CAPSULES DAILY
     Route: 048
     Dates: start: 20091012, end: 20091017

REACTIONS (3)
  - COMA [None]
  - DYSPHAGIA [None]
  - PULMONARY CONGESTION [None]
